FAERS Safety Report 15281408 (Version 1)
Quarter: 2018Q3

REPORT INFORMATION
  Report Type: Spontaneous
  Country: IN (occurrence: IN)
  Receive Date: 20180815
  Receipt Date: 20180815
  Transmission Date: 20181010
  Serious: Yes (Other)
  Sender: FDA-Public Use
  Company Number: IN-SA-2018SA212855

PATIENT
  Age: 64 Year
  Sex: Male

DRUGS (1)
  1. TRIAMCINOLONE ACETONIDE. [Suspect]
     Active Substance: TRIAMCINOLONE ACETONIDE
     Indication: DIABETIC RETINAL OEDEMA
     Dosage: 4 MG
     Route: 031

REACTIONS (8)
  - Macular fibrosis [Recovered/Resolved]
  - Retinitis [Recovered/Resolved]
  - Retinal thickening [Recovered/Resolved]
  - Subretinal fluid [Recovered/Resolved]
  - Retinal haemorrhage [Recovered/Resolved]
  - Vision blurred [Recovered/Resolved]
  - Necrotising retinitis [Recovered/Resolved]
  - Intraocular lens implant [Recovered/Resolved]
